FAERS Safety Report 9933867 (Version 2)
Quarter: 2014Q1

REPORT INFORMATION
  Report Type: Report from Study
  Country: US (occurrence: US)
  Receive Date: 20140228
  Receipt Date: 20140228
  Transmission Date: 20141002
  Serious: No
  Sender: FDA-Public Use
  Company Number: US-MYLANLABS-2013S1017224

PATIENT
  Age: 15 Year
  Sex: Female
  Weight: 54.43 kg

DRUGS (2)
  1. AMNESTEEM CAPSULES [Suspect]
     Dates: start: 20130521, end: 201307
  2. AMNESTEEM CAPSULES [Suspect]
     Dates: start: 201307

REACTIONS (3)
  - Unevaluable event [Recovered/Resolved]
  - Gastroenteritis viral [Not Recovered/Not Resolved]
  - Respiratory tract infection viral [Not Recovered/Not Resolved]
